FAERS Safety Report 5827396-8 (Version None)
Quarter: 2008Q3

REPORT INFORMATION
  Report Type: 
  Country: None (occurrence: None)
  Receive Date: 20080725
  Receipt Date: 20080711
  Transmission Date: 20090109
  Serious: Yes (Hospitalization)
  Sender: FDA-Public Use
  Company Number: 19777

PATIENT
  Age: 42 Year
  Sex: Male
  Weight: 67 kg

DRUGS (8)
  1. DOXORUBICIN HCL [Suspect]
     Indication: SMALL CELL LUNG CANCER STAGE UNSPECIFIED
     Dosage: 70 MG IV
     Route: 042
     Dates: start: 20080505
  2. VINCRISTINE [Suspect]
     Indication: SMALL CELL LUNG CANCER STAGE UNSPECIFIED
     Dosage: 2 MG IV
     Route: 042
     Dates: start: 20080505
  3. CYCLOPHOSPHAMIDE [Suspect]
     Indication: SMALL CELL LUNG CANCER STAGE UNSPECIFIED
     Dosage: 1300 MG IV
     Route: 042
     Dates: start: 20080505
  4. MORPHINE [Concomitant]
  5. MOVICOL /01053601/ [Concomitant]
  6. ORAMORPH SR [Concomitant]
  7. ACETAMINOPHEN [Concomitant]
  8. ALBUTEROL [Concomitant]

REACTIONS (1)
  - NEUTROPENIC SEPSIS [None]
